FAERS Safety Report 23532217 (Version 7)
Quarter: 2024Q3

REPORT INFORMATION
  Report Type: Spontaneous
  Country: US (occurrence: US)
  Receive Date: 20240216
  Receipt Date: 20240829
  Transmission Date: 20241017
  Serious: No
  Sender: NOVARTIS
  Company Number: US-002147023-NVSC2024US033641

PATIENT
  Sex: Female

DRUGS (3)
  1. LEQVIO [Suspect]
     Active Substance: INCLISIRAN SODIUM
     Indication: Product used for unknown indication
     Dosage: 284 MG/1.5 ML
     Route: 058
     Dates: start: 20240115
  2. LEQVIO [Suspect]
     Active Substance: INCLISIRAN SODIUM
     Dosage: UNK
     Route: 058
  3. LEQVIO [Suspect]
     Active Substance: INCLISIRAN SODIUM
     Dosage: UNK
     Route: 065

REACTIONS (5)
  - Injection site irritation [Recovered/Resolved]
  - Product packaging issue [Unknown]
  - Device issue [Unknown]
  - Drug dose omission by device [Unknown]
  - Needle issue [Unknown]

NARRATIVE: CASE EVENT DATE: 20240115
